FAERS Safety Report 4312387-9 (Version None)
Quarter: 2004Q1

REPORT INFORMATION
  Report Type: 
  Country: None (occurrence: None)
  Receive Date: 20040303
  Receipt Date: 20040224
  Transmission Date: 20041129
  Serious: Yes (Death, Hospitalization)
  Sender: FDA-Public Use
  Company Number: US-JNJFOC-20040205681

PATIENT
  Age: 81 Year
  Sex: Male

DRUGS (5)
  1. DURAGESIC [Suspect]
     Indication: PAIN
     Dosage: SEE IMAGE
     Route: 062
     Dates: start: 20040101
  2. VIOXX [Concomitant]
  3. KLONAPIN (CLONAZEPAM) [Concomitant]
  4. VALIUM [Concomitant]
  5. PAIN MEDICATION (ANALGESICS) [Concomitant]

REACTIONS (8)
  - DIZZINESS [None]
  - FALL [None]
  - GASTROINTESTINAL INFECTION [None]
  - LUNG INFECTION [None]
  - OVERDOSE [None]
  - PHARMACEUTICAL PRODUCT COMPLAINT [None]
  - PNEUMONIA [None]
  - SOMNOLENCE [None]
